FAERS Safety Report 15291896 (Version 2)
Quarter: 2018Q3

REPORT INFORMATION
  Report Type: Spontaneous
  Country: GB (occurrence: GB)
  Receive Date: 20180817
  Receipt Date: 20180905
  Transmission Date: 20181010
  Serious: Yes (Other)
  Sender: FDA-Public Use
  Company Number: GB-TEVA-2018-GB-943160

PATIENT
  Age: 53 Year
  Sex: Male

DRUGS (5)
  1. CLOZARIL [Suspect]
     Active Substance: CLOZAPINE
     Route: 048
     Dates: start: 20131017
  2. SERTRALINE [Suspect]
     Active Substance: SERTRALINE HYDROCHLORIDE
     Indication: SCHIZOAFFECTIVE DISORDER
     Dosage: 50 MILLIGRAM DAILY; 50 MG, AM
     Route: 065
  3. PRIADEL                            /00033702/ [Suspect]
     Active Substance: LITHIUM CARBONATE
     Indication: SCHIZOAFFECTIVE DISORDER
     Dosage: 800 MILLIGRAM DAILY; 800 MG, QD
     Route: 065
  4. PROPRANOLOL [Suspect]
     Active Substance: PROPRANOLOL HYDROCHLORIDE
     Indication: TACHYCARDIA
     Dosage: 120 MILLIGRAM DAILY;
     Route: 065
  5. CLOZARIL [Suspect]
     Active Substance: CLOZAPINE
     Indication: SCHIZOAFFECTIVE DISORDER
     Dosage: 300 MILLIGRAM DAILY; 300 MG, AM
     Route: 048
     Dates: start: 20131017

REACTIONS (3)
  - Leukocytosis [Recovered/Resolved]
  - Neutrophilia [Recovered/Resolved]
  - Differential white blood cell count abnormal [Recovered/Resolved]

NARRATIVE: CASE EVENT DATE: 20170130
